FAERS Safety Report 6702106-0 (Version None)
Quarter: 2010Q2

REPORT INFORMATION
  Report Type: 
  Country: None (occurrence: None)
  Receive Date: 20100429
  Receipt Date: 20100414
  Transmission Date: 20101027
  Serious: Yes (Other)
  Sender: FDA-Public Use
  Company Number: DE-B.I. PHARMACEUTICALS,INC./RIDGEFIELD-2010-DE-02145DE

PATIENT
  Sex: Male
  Weight: 85 kg

DRUGS (8)
  1. SIFROL [Suspect]
     Indication: PARKINSON'S DISEASE
     Dosage: 1.05 MG
     Route: 048
  2. LEVODOP-NEURAX [Suspect]
     Indication: PARKINSON'S DISEASE
     Dosage: 100 MG LEVODOPA / 25 MG CARBIDOPA
     Route: 048
  3. ASS 100 HEXAL [Concomitant]
     Dosage: 100 MG
     Route: 048
  4. BETAHISTIN STADA 6 [Concomitant]
     Dosage: 12 MG
     Route: 048
  5. EMESTAR PLUS 600/12,5 [Concomitant]
     Dosage: 1 ANZ
     Route: 048
  6. EUTHYROX 125 [Concomitant]
     Dosage: 125 MCG
     Route: 048
  7. LISODURA 10 [Concomitant]
     Dosage: 10 MG
     Route: 048
  8. MOXODURA O,3 [Concomitant]
     Dosage: 0.3 MG
     Route: 048

REACTIONS (6)
  - HYPERSENSITIVITY [None]
  - INFLAMMATION [None]
  - OEDEMA PERIPHERAL [None]
  - PRURITUS [None]
  - RASH PUSTULAR [None]
  - SKIN HAEMORRHAGE [None]
